FAERS Safety Report 7103911-1 (Version None)
Quarter: 2010Q4

REPORT INFORMATION
  Report Type: 
  Country: None (occurrence: None)
  Receive Date: 20101115
  Receipt Date: 20101109
  Transmission Date: 20110411
  Serious: Yes (Other)
  Sender: FDA-Public Use
  Company Number: SE-PFIZER INC-2010143493

PATIENT
  Age: 24 Year
  Sex: Female

DRUGS (1)
  1. MINPROSTIN [Suspect]
     Dosage: UNK
     Route: 067
     Dates: start: 20100101, end: 20100101

REACTIONS (1)
  - DEPRESSED LEVEL OF CONSCIOUSNESS [None]
